FAERS Safety Report 20527854 (Version 2)
Quarter: 2022Q2

REPORT INFORMATION
  Report Type: Spontaneous
  Country: US (occurrence: US)
  Receive Date: 20220228
  Receipt Date: 20220412
  Transmission Date: 20220721
  Serious: No
  Sender: FDA-Public Use
  Company Number: US-JNJFOC-20220240480

PATIENT
  Sex: Male

DRUGS (1)
  1. MENS ROGAINE EXTRA STRENGTH [Suspect]
     Active Substance: MINOXIDIL
     Indication: Alopecia
     Dosage: A DROPPER FULL
     Route: 061
     Dates: start: 202112

REACTIONS (3)
  - Application site pruritus [Not Recovered/Not Resolved]
  - Application site ulcer [Unknown]
  - Application site irritation [Unknown]

NARRATIVE: CASE EVENT DATE: 20220201
